FAERS Safety Report 6019672-3 (Version None)
Quarter: 2008Q4

REPORT INFORMATION
  Report Type: 
  Country: None (occurrence: None)
  Receive Date: 20081224
  Receipt Date: 20081219
  Transmission Date: 20090506
  Serious: Yes (Other)
  Sender: FDA-Public Use
  Company Number: FR-TEVA-182843ISR

PATIENT
  Age: 60 Year
  Sex: Male

DRUGS (3)
  1. AMOXICILLIN + CLAVULANATE POTASSIUM [Suspect]
     Indication: TOOTH ABSCESS
     Dosage: 2 DF
     Route: 048
     Dates: start: 20081209, end: 20081210
  2. METFORMIN HCL [Concomitant]
     Indication: DIABETES MELLITUS
     Route: 048
     Dates: start: 20070101
  3. ESCITALOPRAM OXALATE [Concomitant]
     Indication: DEPRESSION
     Route: 048
     Dates: start: 20070101

REACTIONS (1)
  - BUNDLE BRANCH BLOCK [None]
